FAERS Safety Report 24205547 (Version 2)
Quarter: 2024Q3

REPORT INFORMATION
  Report Type: Spontaneous
  Country: US (occurrence: US)
  Receive Date: 20240813
  Receipt Date: 20240902
  Transmission Date: 20241016
  Serious: Yes (Hospitalization, Other)
  Sender: GLAXOSMITHKLINE
  Company Number: US-GLAXOSMITHKLINE-US2024098068

PATIENT

DRUGS (1)
  1. TRELEGY ELLIPTA [Suspect]
     Active Substance: FLUTICASONE FUROATE\UMECLIDINIUM BROMIDE\VILANTEROL TRIFENATATE
     Indication: Asthma
     Dosage: 1 DF, QD,TRELEGY ELLIPTA 200-62.5MCG,RINSE MOUTH AFTER EACH USE
     Route: 055
     Dates: start: 2022

REACTIONS (5)
  - Pneumonia [Recovering/Resolving]
  - Electrolyte imbalance [Recovering/Resolving]
  - Fall [Recovering/Resolving]
  - Colonic abscess [Unknown]
  - COVID-19 [Recovering/Resolving]

NARRATIVE: CASE EVENT DATE: 20221101
